FAERS Safety Report 7733955-8 (Version None)
Quarter: 2011Q3

REPORT INFORMATION
  Report Type: 
  Country: None (occurrence: None)
  Receive Date: 20110906
  Receipt Date: 20110906
  Transmission Date: 20111222
  Serious: Yes (Hospitalization)
  Sender: FDA-Public Use
  Company Number: None

PATIENT
  Sex: Female
  Weight: 127 kg

DRUGS (7)
  1. CYCLOPHOSPHAMIDE [Suspect]
     Dosage: 3240 MG
  2. LOVENOX [Concomitant]
  3. VINCRISTINE SULFATE [Suspect]
     Dosage: 4 MG
  4. RITUXIMAB (MOAB C2B8 ANTI CD20, CHIMERIC) [Suspect]
     Dosage: 940 MG
  5. ETOPOSIDE [Suspect]
     Dosage: 864 MG
  6. DOXORUBICIN HYDROCHLORIDE [Suspect]
     Dosage: 172 MG
  7. PREDNISONE [Suspect]
     Dosage: 1500 MG

REACTIONS (5)
  - NEUTROPENIA [None]
  - PLATELET COUNT DECREASED [None]
  - BODY TEMPERATURE INCREASED [None]
  - PHARYNGITIS [None]
  - OROPHARYNGEAL PAIN [None]
